FAERS Safety Report 12039320 (Version 2)
Quarter: 2016Q1

REPORT INFORMATION
  Report Type: Spontaneous
  Country: FR (occurrence: FR)
  Receive Date: 20160208
  Receipt Date: 20160331
  Transmission Date: 20160526
  Serious: Yes (Other)
  Sender: FDA-Public Use
  Company Number: FR-EISAI MEDICAL RESEARCH-EC-2016-014189

PATIENT
  Age: 35 Year
  Sex: Male

DRUGS (4)
  1. FYCOMPA [Suspect]
     Active Substance: PERAMPANEL
     Indication: PARTIAL SEIZURES
     Route: 048
     Dates: start: 20151026, end: 20151108
  2. TRILEPTAL [Concomitant]
     Active Substance: OXCARBAZEPINE
     Indication: PRODUCT USED FOR UNKNOWN INDICATION
     Route: 048
     Dates: start: 201504, end: 201510
  3. FYCOMPA [Suspect]
     Active Substance: PERAMPANEL
     Route: 048
     Dates: start: 20151109, end: 20151111
  4. TRILEPTAL [Concomitant]
     Active Substance: OXCARBAZEPINE
     Route: 048
     Dates: start: 201510

REACTIONS (1)
  - Self-injurious ideation [Recovered/Resolved]

NARRATIVE: CASE EVENT DATE: 20151109
